FAERS Safety Report 9277563 (Version 1)
Quarter: 2013Q2

REPORT INFORMATION
  Report Type: Spontaneous
  Country: US (occurrence: None)
  Receive Date: 20130503
  Receipt Date: 20130503
  Transmission Date: 20140414
  Serious: Yes (Hospitalization)
  Sender: FDA-Public Use
  Company Number: None

PATIENT
  Age: 28 Year
  Sex: Male
  Weight: 85.5 kg

DRUGS (1)
  1. PHENAZOPYRIDINE [Suspect]
     Route: 048
     Dates: start: 20121220, end: 20121224

REACTIONS (2)
  - Anaemia [None]
  - Hepatitis [None]
